FAERS Safety Report 23787301 (Version 1)
Quarter: 2024Q2

REPORT INFORMATION
  Report Type: Spontaneous
  Country: US (occurrence: US)
  Receive Date: 20240426
  Receipt Date: 20240426
  Transmission Date: 20240716
  Serious: Yes (Death)
  Sender: FDA-Public Use
  Company Number: US-DRL-USA-LIT/USA/24/0006140

PATIENT
  Age: 65 Year
  Sex: Male

DRUGS (13)
  1. DOXYCYCLINE [Suspect]
     Active Substance: DOXYCYCLINE
     Indication: Vibrio vulnificus infection
  2. DOXYCYCLINE [Suspect]
     Active Substance: DOXYCYCLINE
     Indication: Septic shock
  3. VANCOMYCIN [Concomitant]
     Active Substance: VANCOMYCIN
     Indication: Septic shock
  4. VANCOMYCIN [Concomitant]
     Active Substance: VANCOMYCIN
     Indication: Vibrio vulnificus infection
  5. PIPERACILLIN SODIUM\TAZOBACTAM SODIUM [Concomitant]
     Active Substance: PIPERACILLIN SODIUM\TAZOBACTAM SODIUM
     Indication: Septic shock
  6. PIPERACILLIN SODIUM\TAZOBACTAM SODIUM [Concomitant]
     Active Substance: PIPERACILLIN SODIUM\TAZOBACTAM SODIUM
     Indication: Vibrio vulnificus infection
  7. CEFTRIAXONE [Concomitant]
     Active Substance: CEFTRIAXONE\CEFTRIAXONE SODIUM
     Indication: Septic shock
  8. CEFTRIAXONE [Concomitant]
     Active Substance: CEFTRIAXONE\CEFTRIAXONE SODIUM
     Indication: Vibrio vulnificus infection
  9. MEROPENEM [Concomitant]
     Active Substance: MEROPENEM
     Indication: Vibrio vulnificus infection
  10. MEROPENEM [Concomitant]
     Active Substance: MEROPENEM
     Indication: Septic shock
  11. LINEZOLID [Concomitant]
     Active Substance: LINEZOLID
     Indication: Vibrio vulnificus infection
  12. LINEZOLID [Concomitant]
     Active Substance: LINEZOLID
     Indication: Septic shock
  13. ACETAMINOPHEN [Concomitant]
     Active Substance: ACETAMINOPHEN

REACTIONS (1)
  - Drug ineffective for unapproved indication [Fatal]
